FAERS Safety Report 18360231 (Version 1)
Quarter: 2020Q4

REPORT INFORMATION
  Report Type: Spontaneous
  Country: US (occurrence: US)
  Receive Date: 20201007
  Receipt Date: 20201007
  Transmission Date: 20210114
  Serious: Yes (Hospitalization, Disabling)
  Sender: FDA-Public Use
  Company Number: None

PATIENT
  Age: 78 Year
  Sex: Male
  Weight: 68.04 kg

DRUGS (9)
  1. NORCO [Concomitant]
     Active Substance: ACETAMINOPHEN\HYDROCODONE BITARTRATE
  2. ALBUTEROL. [Concomitant]
     Active Substance: ALBUTEROL
  3. 1 A DAY CENTRUM [Concomitant]
  4. FISH OIL [Concomitant]
     Active Substance: FISH OIL
  5. RANITIDINE. [Suspect]
     Active Substance: RANITIDINE
     Indication: ABDOMINAL PAIN UPPER
     Dosage: ?          QUANTITY:2 DF DOSAGE FORM;OTHER FREQUENCY:2/3 TIMES A DAY;?
     Route: 048
     Dates: start: 20100510, end: 20200417
  6. VITAMIN D3 [Concomitant]
     Active Substance: CHOLECALCIFEROL
  7. CALCIUM [Concomitant]
     Active Substance: CALCIUM
  8. OMEPRAZOLE. [Concomitant]
     Active Substance: OMEPRAZOLE
  9. SENOR + FISH OIL [Concomitant]

REACTIONS (4)
  - Vomiting [None]
  - Cholecystectomy [None]
  - Paraesthesia [None]
  - Abdominal discomfort [None]

NARRATIVE: CASE EVENT DATE: 20191203
